FAERS Safety Report 4827882-3 (Version None)
Quarter: 2005Q4

REPORT INFORMATION
  Report Type: 
  Country: None (occurrence: None)
  Receive Date: 20051115
  Receipt Date: 20050816
  Transmission Date: 20060501
  Serious: Yes (Hospitalization, Other)
  Sender: FDA-Public Use
  Company Number: GB-RB-1965-2005

PATIENT
  Age: 29 Year
  Sex: Female

DRUGS (2)
  1. BUPRENORPHINE HCL [Suspect]
     Indication: DRUG USE FOR UNKNOWN INDICATION
     Route: 060
     Dates: start: 20040301
  2. MEDICINALPRODUCT NOT SPECIFIED BY SENDER [Suspect]
     Indication: DRUG ABUSER
     Dosage: 5 X 10MG DIAZEPAM UNPRESCRIBED)
     Route: 065

REACTIONS (3)
  - ALCOHOL USE [None]
  - SKIN LACERATION [None]
  - SUICIDE ATTEMPT [None]
